FAERS Safety Report 15310251 (Version 1)
Quarter: 2018Q3

REPORT INFORMATION
  Report Type: Spontaneous
  Country: US (occurrence: US)
  Receive Date: 20180813
  Receipt Date: 20180813
  Transmission Date: 20181010
  Serious: No
  Sender: FDA-Public Use
  Company Number: None

PATIENT
  Age: 55 Year
  Sex: Male

DRUGS (1)
  1. STELARA [Suspect]
     Active Substance: USTEKINUMAB
     Dosage: 13?AUG?2099
     Dates: start: 20180813

REACTIONS (2)
  - Injection site warmth [None]
  - Injection site swelling [None]

NARRATIVE: CASE EVENT DATE: 20180813
